FAERS Safety Report 25959552 (Version 3)
Quarter: 2025Q4

REPORT INFORMATION
  Report Type: Spontaneous
  Country: EU (occurrence: EU)
  Receive Date: 20251026
  Receipt Date: 20251205
  Transmission Date: 20260117
  Serious: Yes (Disabling)
  Sender: IPSEN BIOPHARMACEUTICALS, INC.
  Company Number: EU-IPSEN Group, Research and Development-2025-23521

PATIENT
  Age: 30 Year
  Sex: Male
  Weight: 73 kg

DRUGS (2)
  1. DYSPORT [Suspect]
     Active Substance: ABOBOTULINUMTOXINA
     Indication: Hemiparesis
     Dosage: BEFORE 04-JUN-?2025 : 1000 IU
     Route: 030
     Dates: start: 20231031, end: 20231031
  2. DYSPORT [Suspect]
     Active Substance: ABOBOTULINUMTOXINA
     Dosage: 1450 UNITS IN THE LEFT LOWER LIMB AND 50 UNITS IN THE UPPER LIMB AND ANTERIOR BRACHIAL.
     Dates: start: 20250604, end: 20250604

REACTIONS (6)
  - Muscular weakness [Unknown]
  - Muscle atrophy [Unknown]
  - Folate deficiency [Unknown]
  - Dysarthria [Recovering/Resolving]
  - Fatigue [Recovering/Resolving]
  - Blood creatine phosphokinase increased [Unknown]

NARRATIVE: CASE EVENT DATE: 20240101
